FAERS Safety Report 4561259-3 (Version None)
Quarter: 2005Q1

REPORT INFORMATION
  Report Type: 
  Country: None (occurrence: None)
  Receive Date: 20050121
  Receipt Date: 20050112
  Transmission Date: 20050727
  Serious: Yes (Death)
  Sender: FDA-Public Use
  Company Number: MK200501-0117-1

PATIENT
  Age: 43 Year
  Sex: Female

DRUGS (8)
  1. METHADOSE ORAL TABLETS 10 MG. [Suspect]
     Indication: PAIN
     Dosage: 100 MG, QID, PO
     Route: 048
     Dates: start: 20001201, end: 20041123
  2. ALPRAZOLAM [Concomitant]
  3. TIZANIDINE [Concomitant]
  4. BENADRYL [Concomitant]
  5. DESIPRAMIDE HCL [Concomitant]
  6. SYNTHROID [Concomitant]
  7. MULTIVITAMIN [Concomitant]
  8. NICORETTE [Concomitant]

REACTIONS (8)
  - CEREBROVASCULAR ACCIDENT [None]
  - COMPLETED SUICIDE [None]
  - DRUG INTERACTION [None]
  - GRAND MAL CONVULSION [None]
  - ILL-DEFINED DISORDER [None]
  - LOSS OF CONSCIOUSNESS [None]
  - MYOCARDIAL INFARCTION [None]
  - RESPIRATORY ARREST [None]
